FAERS Safety Report 16765751 (Version 1)
Quarter: 2019Q3

REPORT INFORMATION
  Report Type: Spontaneous
  Country: US (occurrence: US)
  Receive Date: 20190903
  Receipt Date: 20190903
  Transmission Date: 20191005
  Serious: Yes (Life-Threatening, Hospitalization)
  Sender: FDA-Public Use
  Company Number: US-TEVA-2019-US-1102837

PATIENT
  Age: 16 Week
  Sex: Female

DRUGS (2)
  1. DIAZOXIDE [Suspect]
     Active Substance: DIAZOXIDE
     Indication: HYPERINSULINISM
     Route: 065
  2. DIAZOXIDE [Suspect]
     Active Substance: DIAZOXIDE
     Dosage: DIAZOXIDE DOSE WAS INCREASED BY 5 MG/KG TILL A MAXIMUM OF 15 MG/KG/DAY WAS REACHED
     Route: 065

REACTIONS (6)
  - Pulmonary arterial hypertension [Recovered/Resolved]
  - Cardio-respiratory distress [Recovering/Resolving]
  - Tricuspid valve incompetence [Recovering/Resolving]
  - Hypotension [Recovering/Resolving]
  - Re-opening of ductus arteriosus [Recovered/Resolved]
  - Respiratory failure [Recovering/Resolving]
